FAERS Safety Report 14803579 (Version 2)
Quarter: 2018Q2

REPORT INFORMATION
  Report Type: Report from Study
  Country: DE (occurrence: DE)
  Receive Date: 20180425
  Receipt Date: 20180427
  Transmission Date: 20180711
  Serious: Yes (Death, Hospitalization, Other)
  Sender: FDA-Public Use
  Company Number: DE-BRISTOL-MYERS SQUIBB COMPANY-BMS-2018-030819

PATIENT
  Age: 78 Year
  Sex: Female

DRUGS (5)
  1. GEMCITABINE HYDROCHLORIDE. [Suspect]
     Active Substance: GEMCITABINE HYDROCHLORIDE
     Indication: NON-HODGKIN^S LYMPHOMA
     Dosage: UNK INFUSION
     Route: 042
     Dates: start: 20180212, end: 20180327
  2. NIVOLUMAB [Suspect]
     Active Substance: NIVOLUMAB
     Indication: NON-HODGKIN^S LYMPHOMA
     Dosage: 165 MG, QCYCLE
     Route: 042
     Dates: start: 20180208, end: 20180327
  3. OXALIPLATIN. [Suspect]
     Active Substance: OXALIPLATIN
     Indication: NON-HODGKIN^S LYMPHOMA
     Dosage: 156 MG, QCYCLE
     Route: 042
     Dates: start: 20180212, end: 20180327
  4. RITUXIMAB. [Suspect]
     Active Substance: RITUXIMAB
     Indication: NON-HODGKIN^S LYMPHOMA
     Dosage: 590 MG, QCYCLE
     Route: 042
     Dates: start: 20180212, end: 20180327
  5. PEGFILGRASTIM [Concomitant]
     Active Substance: PEGFILGRASTIM
     Indication: PRODUCT USED FOR UNKNOWN INDICATION
     Dosage: 2 MG, QCYCLE
     Route: 058
     Dates: start: 20180209

REACTIONS (3)
  - Renal failure [Fatal]
  - Pneumonia [Fatal]
  - Upper gastrointestinal haemorrhage [Fatal]

NARRATIVE: CASE EVENT DATE: 20180329
